FAERS Safety Report 10765694 (Version 1)
Quarter: 2015Q1

REPORT INFORMATION
  Report Type: Spontaneous
  Country: FR (occurrence: FR)
  Receive Date: 20150205
  Receipt Date: 20150205
  Transmission Date: 20150721
  Serious: Yes (Life-Threatening, Hospitalization)
  Sender: FDA-Public Use
  Company Number: FR-SA-2015SA011981

PATIENT
  Age: 63 Year
  Sex: Female

DRUGS (2)
  1. PLAVIX [Suspect]
     Active Substance: CLOPIDOGREL BISULFATE
     Route: 048
     Dates: end: 20141028
  2. PREVISCAN [Suspect]
     Active Substance: FLUINDIONE
     Dosage: FORM-COMPRIME SECABLE
     Route: 048
     Dates: end: 20141028

REACTIONS (3)
  - International normalised ratio increased [Recovered/Resolved]
  - Retroperitoneal haematoma [Recovered/Resolved]
  - Anaemia [Recovered/Resolved]

NARRATIVE: CASE EVENT DATE: 20141028
